FAERS Safety Report 10183947 (Version 1)
Quarter: 2014Q2

REPORT INFORMATION
  Report Type: Spontaneous
  Country: IT (occurrence: IT)
  Receive Date: 20140520
  Receipt Date: 20140520
  Transmission Date: 20141212
  Serious: Yes (Other)
  Sender: FDA-Public Use
  Company Number: IT-TEVA-480710ISR

PATIENT
  Age: 43 Year
  Sex: Male
  Weight: 75 kg

DRUGS (3)
  1. PAROXETINE [Suspect]
     Indication: INTENTIONAL SELF-INJURY
     Route: 048
     Dates: start: 20140316, end: 20140316
  2. RISPERDAL 4 MG COMPRESSE RIVESTITE CON FILM - JANSSEN CILAG S.P.A. [Suspect]
     Indication: INTENTIONAL SELF-INJURY
     Route: 048
     Dates: start: 20140316, end: 20140316
  3. RIVOTRIL 0,5 MG COMPRESSE - ROCHE S.P.A. [Suspect]
     Indication: INTENTIONAL SELF-INJURY
     Route: 048
     Dates: start: 20140316, end: 20140316

REACTIONS (3)
  - Alcohol abuse [Recovering/Resolving]
  - Drug abuse [Recovering/Resolving]
  - Intentional self-injury [Recovering/Resolving]
